FAERS Safety Report 9760410 (Version 2)
Quarter: 2014Q1

REPORT INFORMATION
  Report Type: Spontaneous
  Country: US (occurrence: US)
  Receive Date: 20131216
  Receipt Date: 20140128
  Transmission Date: 20141002
  Serious: No
  Sender: FDA-Public Use
  Company Number: US-PFIZER INC-2013358538

PATIENT
  Age: 68 Year
  Sex: Female
  Weight: 68.03 kg

DRUGS (2)
  1. NEURONTIN [Suspect]
     Indication: FIBROMYALGIA
     Dosage: UNK, THREE TIMES A DAY
     Route: 048
     Dates: start: 201311, end: 201312
  2. NEURONTIN [Suspect]
     Dosage: 300 MG ONE TO TWO, AT BEDTIME
     Route: 048
     Dates: start: 20131105

REACTIONS (2)
  - Off label use [Unknown]
  - Drug ineffective for unapproved indication [Unknown]
